FAERS Safety Report 6624753-7 (Version None)
Quarter: 2010Q1

REPORT INFORMATION
  Report Type: 
  Country: None (occurrence: None)
  Receive Date: 20100310
  Receipt Date: 20100304
  Transmission Date: 20100710
  Serious: Yes (Other)
  Sender: FDA-Public Use
  Company Number: PL-PFIZER INC-2010028771

PATIENT
  Age: 60 Year
  Sex: Female

DRUGS (2)
  1. ATARAX [Suspect]
     Dosage: UNK
     Dates: end: 20090101
  2. ALPRAZOLAM [Concomitant]

REACTIONS (1)
  - DYSKINESIA [None]
